FAERS Safety Report 7541668-0 (Version None)
Quarter: 2011Q2

REPORT INFORMATION
  Report Type: 
  Country: None (occurrence: None)
  Receive Date: 20110613
  Receipt Date: 20110603
  Transmission Date: 20111010
  Serious: Yes (Other)
  Sender: FDA-Public Use
  Company Number: US-JNJFOC-20110602861

PATIENT
  Sex: Male
  Weight: 120.2 kg

DRUGS (6)
  1. DURAGESIC-100 [Suspect]
     Indication: BACK PAIN
     Route: 062
     Dates: start: 20080101
  2. NEURONTIN [Concomitant]
     Indication: BACK PAIN
     Route: 048
     Dates: start: 20080101
  3. FIORICET [Concomitant]
     Indication: MIGRAINE
     Route: 048
     Dates: start: 20080101
  4. PROPANOLOL HCL [Concomitant]
     Indication: HYPERTENSION
     Route: 048
     Dates: start: 20070101
  5. ZANAFLEX [Concomitant]
     Indication: MUSCLE RELAXANT THERAPY
     Route: 048
     Dates: start: 20080101
  6. PERCOCET [Concomitant]
     Indication: PAIN
     Route: 048
     Dates: start: 20080101

REACTIONS (3)
  - HYPERTENSION [None]
  - PELVIC FRACTURE [None]
  - ROAD TRAFFIC ACCIDENT [None]
